FAERS Safety Report 8203634-1 (Version None)
Quarter: 2012Q1

REPORT INFORMATION
  Report Type: 
  Country: None (occurrence: None)
  Receive Date: 20120313
  Receipt Date: 20120228
  Transmission Date: 20120608
  Serious: Yes (Other)
  Sender: FDA-Public Use
  Company Number: FR-AMGEN-FRASP2012013852

PATIENT
  Age: 62 Year
  Sex: Female

DRUGS (9)
  1. ALLOPURINOL [Concomitant]
     Dosage: UNK
  2. MEDIATENSYL                        /00631801/ [Concomitant]
     Dosage: UNK
  3. ENBREL [Suspect]
     Indication: PRODUCT USED FOR UNKNOWN INDICATION
     Dosage: UNK
  4. ATORVASTATIN [Concomitant]
     Dosage: UNK
  5. DAFLON                             /00426001/ [Concomitant]
     Dosage: UNK
  6. LASIX [Concomitant]
     Dosage: UNK
  7. ATACAND [Concomitant]
     Dosage: UNK
  8. ASPIRIN [Concomitant]
     Dosage: UNK
  9. REPAGLINIDE [Concomitant]
     Dosage: UNK

REACTIONS (3)
  - ABDOMINAL INFECTION [None]
  - POST PROCEDURAL COMPLICATION [None]
  - SURGERY [None]
